FAERS Safety Report 10223737 (Version 1)
Quarter: 2014Q2

REPORT INFORMATION
  Report Type: Spontaneous
  Country: US (occurrence: US)
  Receive Date: 20140609
  Receipt Date: 20140609
  Transmission Date: 20141212
  Serious: No
  Sender: FDA-Public Use
  Company Number: US-DRREDDYS-USA/USA/14/0038662

PATIENT
  Age: 78 Year
  Sex: Male
  Weight: 81.6 kg

DRUGS (1)
  1. FEXOFENADINE HCL  OTC [Suspect]
     Indication: HYPERSENSITIVITY
     Route: 048
     Dates: start: 20140304

REACTIONS (2)
  - Dyspepsia [Not Recovered/Not Resolved]
  - Wrong technique in drug usage process [Unknown]
